FAERS Safety Report 9691586 (Version 2)
Quarter: 2014Q1

REPORT INFORMATION
  Report Type: Spontaneous
  Country: JP (occurrence: JP)
  Receive Date: 20131115
  Receipt Date: 20140228
  Transmission Date: 20141002
  Serious: Yes (Death, Hospitalization, Other)
  Sender: FDA-Public Use
  Company Number: JP-TAKEDA-2013TJP002824

PATIENT
  Age: 80 Year
  Sex: Male
  Weight: 45.4 kg

DRUGS (5)
  1. LIOVEL COMBINATION TABLETS LD [Suspect]
     Indication: TYPE 2 DIABETES MELLITUS
     Dosage: 1 DF, QD
     Route: 048
     Dates: start: 20130620
  2. LIOVEL COMBINATION TABLETS LD [Suspect]
     Dosage: 1 DF, QD
     Route: 048
     Dates: start: 20130919, end: 20130920
  3. BASEN OD TABLETS 0.3 [Suspect]
     Indication: TYPE 2 DIABETES MELLITUS
     Dosage: 0.3 MG, TID
     Route: 048
     Dates: start: 20130814, end: 20130920
  4. GLACTIV [Suspect]
     Indication: TYPE 2 DIABETES MELLITUS
     Dosage: 50 MG, QD
     Route: 048
     Dates: start: 20130821, end: 20130920
  5. SEIBULE [Concomitant]
     Dosage: 50 MG, TID
     Route: 048
     Dates: start: 20130620, end: 20130813

REACTIONS (1)
  - Intestinal obstruction [Fatal]
